FAERS Safety Report 8740400 (Version 5)
Quarter: 2016Q2

REPORT INFORMATION
  Report Type: Spontaneous
  Country: US (occurrence: US)
  Receive Date: 20120823
  Receipt Date: 20160503
  Transmission Date: 20160815
  Serious: Yes (Disabling, Other)
  Sender: FDA-Public Use
  Company Number: US-009507513-1208USA004054

PATIENT
  Sex: Male
  Weight: 88.89 kg

DRUGS (2)
  1. PROPECIA [Suspect]
     Active Substance: FINASTERIDE
     Indication: ANDROGENETIC ALOPECIA
     Dosage: 1 MG, QD
     Route: 048
     Dates: start: 199806, end: 20100908
  2. MONOPRIL [Concomitant]
     Active Substance: FOSINOPRIL SODIUM
     Indication: HYPERTENSION
     Dosage: 10 MG, UNK
     Route: 048
     Dates: start: 1997

REACTIONS (28)
  - Eye disorder [Unknown]
  - Back pain [Unknown]
  - Rotator cuff syndrome [Unknown]
  - Sexual dysfunction [Not Recovered/Not Resolved]
  - Intervertebral disc degeneration [Unknown]
  - Cognitive disorder [Not Recovered/Not Resolved]
  - Anxiety [Unknown]
  - Back pain [Unknown]
  - Depression [Unknown]
  - Exophthalmos [Unknown]
  - Diabetes mellitus [Unknown]
  - Musculoskeletal pain [Unknown]
  - Cholelithiasis [Unknown]
  - Depression [Unknown]
  - Libido decreased [Unknown]
  - Hypersensitivity [Unknown]
  - Erectile dysfunction [Unknown]
  - Appendicectomy [Unknown]
  - Somnolence [Unknown]
  - Constipation [Not Recovered/Not Resolved]
  - Major depression [Unknown]
  - Hypoaesthesia [Unknown]
  - Radiculopathy [Unknown]
  - Fatigue [Unknown]
  - Intervertebral disc degeneration [Unknown]
  - Radiculopathy [Unknown]
  - Tinnitus [Unknown]
  - Dysuria [Unknown]

NARRATIVE: CASE EVENT DATE: 2003
